FAERS Safety Report 8520018-7 (Version None)
Quarter: 2012Q3

REPORT INFORMATION
  Report Type: 
  Country: None (occurrence: None)
  Receive Date: 20120719
  Receipt Date: 20120716
  Transmission Date: 20120928
  Serious: No
  Sender: FDA-Public Use
  Company Number: US-PFIZER INC-2012171497

PATIENT
  Sex: Female
  Weight: 72.562 kg

DRUGS (5)
  1. ACTOS [Concomitant]
     Indication: DIABETES MELLITUS
     Dosage: 45 MG, DAILY
  2. GLIPIZIDE [Concomitant]
     Indication: DIABETES MELLITUS
     Dosage: 5 MG, DAILY
  3. OMEPRAZOLE [Concomitant]
     Indication: DYSPEPSIA
     Dosage: 20 MG, DAILY
  4. SUTENT [Suspect]
     Indication: RENAL CELL CARCINOMA
     Dosage: 37.5 MG, UNK
     Dates: start: 20110101
  5. LISINOPRIL AND HYDROCHLOROTHIAZIDE [Concomitant]
     Indication: HYPERTENSION
     Dosage: UNK, 2X/DAY

REACTIONS (3)
  - DISEASE PROGRESSION [None]
  - RENAL CELL CARCINOMA [None]
  - HYPOTHYROIDISM [None]
